FAERS Safety Report 8462971-6 (Version None)
Quarter: 2012Q2

REPORT INFORMATION
  Report Type: 
  Country: None (occurrence: None)
  Receive Date: 20120625
  Receipt Date: 20120614
  Transmission Date: 20120825
  Serious: Yes (Hospitalization)
  Sender: FDA-Public Use
  Company Number: TW-GLAXOSMITHKLINE-A0982029A

PATIENT
  Age: 56 Year
  Sex: Male

DRUGS (3)
  1. UNKNOWN [Concomitant]
  2. METFORMIN HCL [Suspect]
     Indication: PRODUCT USED FOR UNKNOWN INDICATION
     Dosage: 1G TWICE PER DAY
  3. AVANDAMET [Suspect]
     Indication: PRODUCT USED FOR UNKNOWN INDICATION
     Dosage: 1G TWICE PER DAY

REACTIONS (8)
  - ASTHENIA [None]
  - ISCHAEMIC STROKE [None]
  - MUSCULAR WEAKNESS [None]
  - COMPUTERISED TOMOGRAM HEAD [None]
  - CEREBRAL INFARCTION [None]
  - HYPOAESTHESIA [None]
  - MOVEMENT DISORDER [None]
  - GAIT DISTURBANCE [None]
